FAERS Safety Report 17511873 (Version 2)
Quarter: 2020Q1

REPORT INFORMATION
  Report Type: Report from Study
  Country: ES (occurrence: ES)
  Receive Date: 20200306
  Receipt Date: 20200317
  Transmission Date: 20200409
  Serious: Yes (Death, Life-Threatening, Hospitalization)
  Sender: FDA-Public Use
  Company Number: ES-CELGENEUS-ESP-20200300543

PATIENT
  Age: 70 Year
  Sex: Female
  Weight: 74 kg

DRUGS (15)
  1. FLUOROURACIL. [Suspect]
     Active Substance: FLUOROURACIL
     Route: 041
     Dates: start: 20190205, end: 20200204
  2. CLEXANE [Concomitant]
     Active Substance: ENOXAPARIN SODIUM
     Indication: THROMBOSIS
     Route: 058
     Dates: start: 20190109
  3. METHYLPREDNISOLONE. [Concomitant]
     Active Substance: METHYLPREDNISOLONE
     Indication: RASH
     Route: 048
     Dates: start: 20190611
  4. ALLOPURINOL. [Concomitant]
     Active Substance: ALLOPURINOL
     Indication: BLOOD CREATININE INCREASED
     Route: 048
     Dates: start: 20200128
  5. OXALIPLATIN. [Suspect]
     Active Substance: OXALIPLATIN
     Indication: PANCREATIC CARCINOMA
     Route: 041
     Dates: start: 20190205, end: 20190611
  6. LEUCOVORIN. [Suspect]
     Active Substance: LEUCOVORIN
     Indication: PANCREATIC CARCINOMA
     Route: 041
     Dates: start: 20190205, end: 20200204
  7. ATORVASTATIN [Concomitant]
     Active Substance: ATORVASTATIN
     Indication: DYSLIPIDAEMIA
     Route: 048
  8. NAPROXENO [Concomitant]
     Active Substance: NAPROXEN
     Indication: PYREXIA
     Route: 048
     Dates: start: 20191111
  9. AMLODIPINE [Concomitant]
     Active Substance: AMLODIPINE BESYLATE
     Indication: HYPERTENSION
     Route: 048
  10. OMEPRAZOLE. [Concomitant]
     Active Substance: OMEPRAZOLE
     Indication: GASTRIC MUCOSAL LESION
     Route: 048
     Dates: start: 20190121
  11. GEMCITABINE. [Suspect]
     Active Substance: GEMCITABINE
     Indication: PANCREATIC CARCINOMA
     Route: 041
     Dates: start: 20190115, end: 20200225
  12. FLUOROURACIL. [Suspect]
     Active Substance: FLUOROURACIL
     Indication: PANCREATIC CARCINOMA
     Route: 041
     Dates: start: 20190205, end: 20200204
  13. VALSARTAN. [Concomitant]
     Active Substance: VALSARTAN
     Indication: HYPERTENSION
     Route: 048
  14. ABRAXANE [Suspect]
     Active Substance: PACLITAXEL
     Indication: PANCREATIC CARCINOMA
     Route: 041
     Dates: start: 20190115, end: 20191001
  15. LEVOTIROXINA [Concomitant]
     Active Substance: LEVOTHYROXINE
     Indication: HYPERTHYROIDISM
     Route: 048

REACTIONS (1)
  - Soft tissue infection [Fatal]

NARRATIVE: CASE EVENT DATE: 20200228
